FAERS Safety Report 6874505-8 (Version None)
Quarter: 2010Q3

REPORT INFORMATION
  Report Type: 
  Country: None (occurrence: None)
  Receive Date: 20100723
  Receipt Date: 20100723
  Transmission Date: 20110219
  Serious: Yes (Other)
  Sender: FDA-Public Use
  Company Number: None

PATIENT
  Age: 74 Year
  Sex: Female
  Weight: 55.7924 kg

DRUGS (1)
  1. HYDRALAZINE HCL [Suspect]
     Indication: HYPERTENSION
     Dosage: 10MG EVERY 4 HRS PRN IV
     Route: 042
     Dates: start: 20100402, end: 20100402

REACTIONS (3)
  - CONFUSIONAL STATE [None]
  - PARANOIA [None]
  - REFUSAL OF TREATMENT BY PATIENT [None]
